FAERS Safety Report 26092441 (Version 1)
Quarter: 2025Q4

REPORT INFORMATION
  Report Type: Spontaneous
  Country: US (occurrence: None)
  Receive Date: 20251125
  Receipt Date: 20251125
  Transmission Date: 20260117
  Serious: No
  Sender: FDA-CTU
  Company Number: None

PATIENT
  Sex: Female
  Weight: 107.1 kg

DRUGS (17)
  1. SLYND [Suspect]
     Active Substance: DROSPIRENONE
     Indication: Dysmenorrhoea
     Dosage: 28 TABLET(S) DAILY ORAL
     Route: 048
     Dates: start: 20241008, end: 20251108
  2. SLYND [Suspect]
     Active Substance: DROSPIRENONE
     Indication: Oligomenorrhoea
  3. SLYND [Suspect]
     Active Substance: DROSPIRENONE
     Indication: Intermenstrual bleeding
  4. SLYND [Suspect]
     Active Substance: DROSPIRENONE
     Indication: Polycystic ovarian syndrome
  5. METFORMIN HYDROCHLORIDE [Concomitant]
     Active Substance: METFORMIN HYDROCHLORIDE
  6. CITALOPRAM [Concomitant]
     Active Substance: CITALOPRAM
  7. PROPRANOLOL [Concomitant]
     Active Substance: PROPRANOLOL HYDROCHLORIDE
  8. MEDROXYPROGESTERONE ACETATE [Concomitant]
     Active Substance: MEDROXYPROGESTERONE ACETATE
  9. OZEMPIC [Concomitant]
     Active Substance: SEMAGLUTIDE
  10. HYDROXYCHLOROQUINE [Concomitant]
     Active Substance: HYDROXYCHLOROQUINE
  11. One-Touch brand glucose meter device [Concomitant]
  12. FISH OIL [Concomitant]
     Active Substance: FISH OIL
  13. COENZYME Q10 [Concomitant]
     Active Substance: DIETARY SUPPLEMENT\UBIDECARENONE
  14. DIETARY SUPPLEMENT [Concomitant]
     Active Substance: DIETARY SUPPLEMENT
  15. VITAMIN D3 [Concomitant]
     Active Substance: CHOLECALCIFEROL
  16. VITAMIN B12 [Concomitant]
     Active Substance: CYANOCOBALAMIN
  17. MELATONIN [Concomitant]
     Active Substance: MELATONIN

REACTIONS (1)
  - Blood triglycerides increased [None]
